FAERS Safety Report 21482502 (Version 2)
Quarter: 2022Q4

REPORT INFORMATION
  Report Type: Report from Study
  Country: US (occurrence: US)
  Receive Date: 20221020
  Receipt Date: 20221117
  Transmission Date: 20230113
  Serious: No
  Sender: FDA-Public Use
  Company Number: US-ABBVIE-4162970

PATIENT
  Age: 62 Year
  Sex: Female

DRUGS (2)
  1. SKYRIZI [Suspect]
     Active Substance: RISANKIZUMAB-RZAA
     Indication: Psoriasis
     Dosage: STRENGTH 150 MG.?WEEK 0?LAST ADMINISTRATION DATE OCT 2022.
     Route: 058
     Dates: start: 20221004
  2. SKYRIZI [Suspect]
     Active Substance: RISANKIZUMAB-RZAA
     Indication: Psoriasis
     Dosage: STRENGTH 150 MG.?WEEK 4, AND EVERY 12 WEEKS THEREAFTER.?FIRST ADMINISTRATION DATE OCT 2022
     Route: 058

REACTIONS (7)
  - Dyspnoea [Unknown]
  - Headache [Recovered/Resolved]
  - Gait disturbance [Unknown]
  - Fatigue [Unknown]
  - Hangover [Unknown]
  - Insomnia [Unknown]
  - Pain [Recovered/Resolved]

NARRATIVE: CASE EVENT DATE: 20221007
